FAERS Safety Report 9109456 (Version 1)
Quarter: 2013Q1

REPORT INFORMATION
  Report Type: Spontaneous
  Country: DE (occurrence: DE)
  Receive Date: 20130222
  Receipt Date: 20130222
  Transmission Date: 20140127
  Serious: Yes (Other)
  Sender: FDA-Public Use
  Company Number: PHHY2013DE003462

PATIENT
  Age: 60 Year
  Sex: Female

DRUGS (1)
  1. DAFIRO HCT [Suspect]
     Dosage: UNK UKN(160/5/12.5 MG), UNK

REACTIONS (1)
  - Hypertensive crisis [Unknown]
